FAERS Safety Report 23078266 (Version 1)
Quarter: 2023Q4

REPORT INFORMATION
  Report Type: Other
  Country: GB (occurrence: GB)
  Receive Date: 20231018
  Receipt Date: 20231018
  Transmission Date: 20240110
  Serious: Yes (Other)
  Sender: FDA-Public Use
  Company Number: GB-DENTSPLY-2023SCDP000343

PATIENT
  Age: 71 Year
  Sex: Female

DRUGS (1)
  1. LIDOCAINE HYDROCHLORIDE AND EPINEPHRINE BITARTRATE [Suspect]
     Active Substance: EPINEPHRINE BITARTRATE\LIDOCAINE HYDROCHLORIDE
     Indication: Local anaesthesia
     Dosage: UNK DOSE OF ADRENALINE AND LIDOCAINE
     Dates: start: 20230927

REACTIONS (5)
  - Facial paralysis [Recovered/Resolved]
  - Blindness transient [None]
  - Fatigue [None]
  - Headache [None]
  - Tremor [None]

NARRATIVE: CASE EVENT DATE: 20230927
